FAERS Safety Report 11643732 (Version 1)
Quarter: 2015Q4

REPORT INFORMATION
  Report Type: Not Available
  Country: CN (occurrence: CN)
  Receive Date: 20151020
  Receipt Date: 20151020
  Transmission Date: 20160304
  Serious: Yes (Hospitalization)
  Sender: FDA-Public Use
  Company Number: CN-MUNDIPHARMA DS AND PHARMACOVIGILANCE-GBR-2015-0031411

PATIENT
  Age: 52 Year
  Sex: Male
  Weight: 70 kg

DRUGS (2)
  1. MS CONTIN [Suspect]
     Active Substance: MORPHINE SULFATE
     Indication: LUNG NEOPLASM MALIGNANT
     Dosage: 20 MG, BID
     Route: 048
     Dates: start: 20150504, end: 20150510
  2. CISPLATIN. [Suspect]
     Active Substance: CISPLATIN
     Indication: PRODUCT USED FOR UNKNOWN INDICATION
     Route: 065

REACTIONS (1)
  - Renal impairment [Not Recovered/Not Resolved]

NARRATIVE: CASE EVENT DATE: 20150510
